FAERS Safety Report 8175898-4 (Version None)
Quarter: 2012Q1

REPORT INFORMATION
  Report Type: 
  Country: None (occurrence: None)
  Receive Date: 20120301
  Receipt Date: 20120222
  Transmission Date: 20120608
  Serious: Yes (Hospitalization)
  Sender: FDA-Public Use
  Company Number: US-US-EMD SERONO, INC.-232452J10USA

PATIENT
  Sex: Female

DRUGS (13)
  1. PERCOCET [Concomitant]
     Indication: PAIN
  2. POTASSIUM CHLORIDE [Concomitant]
     Indication: BLOOD POTASSIUM DECREASED
  3. MYSOLINE [Concomitant]
  4. METHADONE HCL [Concomitant]
     Indication: PAIN
  5. IMITREX [Concomitant]
     Indication: MIGRAINE
  6. PHENERGAN [Concomitant]
     Indication: NAUSEA
  7. REBIF [Suspect]
     Indication: MULTIPLE SCLEROSIS
     Route: 058
     Dates: start: 20081218
  8. SEROQUEL [Concomitant]
     Indication: INSOMNIA
     Dates: start: 20090101
  9. PAMELOR [Concomitant]
     Indication: DEPRESSION
     Dates: start: 20090101
  10. ZOLOFT [Concomitant]
     Indication: DEPRESSION
     Dates: start: 20090101
  11. PRILOSEC [Concomitant]
     Indication: EPIGASTRIC DISCOMFORT
  12. LEVOTHYROXINE SODIUM [Concomitant]
     Indication: HYPOTHYROIDISM
  13. NEURONTIN [Concomitant]

REACTIONS (3)
  - MULTIPLE SCLEROSIS [None]
  - CONVULSION [None]
  - DRUG INTERACTION [None]
